FAERS Safety Report 10179337 (Version 1)
Quarter: 2014Q2

REPORT INFORMATION
  Report Type: Spontaneous
  Country: PK (occurrence: PK)
  Receive Date: 20140519
  Receipt Date: 20140519
  Transmission Date: 20141212
  Serious: Yes (Hospitalization)
  Sender: FDA-Public Use
  Company Number: PK-SA-2014SA058855

PATIENT
  Age: 27 Year
  Sex: Female
  Weight: 67 kg

DRUGS (3)
  1. CLEXANE [Suspect]
     Indication: ABORTION SPONTANEOUS
     Route: 058
     Dates: start: 20140410, end: 20140504
  2. FOLIC ACID [Concomitant]
     Indication: PREGNANCY
     Route: 048
     Dates: start: 20140410
  3. ASCARD [Concomitant]
     Indication: PREGNANCY
     Route: 048
     Dates: start: 20140410

REACTIONS (1)
  - Abortion missed [Recovering/Resolving]
